FAERS Safety Report 8308460-0 (Version None)
Quarter: 2012Q2

REPORT INFORMATION
  Report Type: 
  Country: None (occurrence: None)
  Receive Date: 20120420
  Receipt Date: 20120409
  Transmission Date: 20120825
  Serious: Yes (Other)
  Sender: FDA-Public Use
  Company Number: 2012P1012732

PATIENT
  Age: 35 Year
  Sex: Female

DRUGS (3)
  1. VALPROATE SODIUM [Suspect]
     Indication: SCHIZOPHRENIA, PARANOID TYPE
     Dosage: 1000 MG;QD;PO
     Route: 048
  2. CLOZAPINE [Suspect]
     Indication: SCHIZOPHRENIA, PARANOID TYPE
     Dosage: 25-400 MG;QD;PO 200 MG;QD;PO
     Route: 048
  3. RISPERIDONE [Suspect]
     Indication: SCHIZOPHRENIA, PARANOID TYPE
     Dosage: 4 MG;QD;PO
     Route: 048

REACTIONS (5)
  - GRAND MAL CONVULSION [None]
  - PSYCHOTIC DISORDER [None]
  - ASTERIXIS [None]
  - DRUG INTERACTION [None]
  - CONDITION AGGRAVATED [None]
